FAERS Safety Report 5748910-7 (Version None)
Quarter: 2008Q2

REPORT INFORMATION
  Report Type: 
  Country: None (occurrence: None)
  Receive Date: 20080525
  Receipt Date: 20080520
  Transmission Date: 20081010
  Serious: Yes (Other)
  Sender: FDA-Public Use
  Company Number: DE-RANBAXY-2008RR-15223

PATIENT

DRUGS (4)
  1. VERAPAMIL BASICS 80MG [Suspect]
     Indication: ANGINA PECTORIS
     Dosage: 80 MG, TID
  2. VERAPAMIL BASICS 80MG [Suspect]
     Indication: HEARING IMPAIRED
  3. HYDROCHLOROTHIAZIDE [Concomitant]
     Dosage: 25 MG, QD
  4. DIGIMERCK [Concomitant]
     Dosage: 0.07 MG, QD

REACTIONS (4)
  - AMYOTROPHY [None]
  - ASTHMA [None]
  - HEARING IMPAIRED [None]
  - MYALGIA [None]
